FAERS Safety Report 5323807-5 (Version None)
Quarter: 2007Q2

REPORT INFORMATION
  Report Type: 
  Country: None (occurrence: None)
  Receive Date: 20070514
  Receipt Date: 20070511
  Transmission Date: 20071010
  Serious: Yes (Disabling)
  Sender: FDA-Public Use
  Company Number: A0651006A

PATIENT
  Age: 53 Year
  Sex: Female

DRUGS (4)
  1. AVANDAMET [Suspect]
     Dosage: 1TAB FOUR TIMES PER DAY
     Route: 048
     Dates: start: 20040101
  2. BENICAR [Concomitant]
  3. METOPROLOL SUCCINATE [Concomitant]
  4. LOVASTATIN [Concomitant]

REACTIONS (5)
  - ABDOMINAL DISCOMFORT [None]
  - ANAEMIA [None]
  - FATIGUE [None]
  - GASTROINTESTINAL DISORDER [None]
  - NAUSEA [None]
